FAERS Safety Report 7985953-7 (Version None)
Quarter: 2011Q4

REPORT INFORMATION
  Report Type: 
  Country: None (occurrence: None)
  Receive Date: 20111216
  Receipt Date: 20111209
  Transmission Date: 20120403
  Serious: Yes (Disabling, Other)
  Sender: FDA-Public Use
  Company Number: GB-BAYER-2011-100843

PATIENT
  Age: 33 Year
  Sex: Female
  Weight: 66 kg

DRUGS (3)
  1. AMITRIPTYLINE HCL [Concomitant]
     Dosage: UNK
     Dates: end: 20110101
  2. INTERFERON BETA-1B [Suspect]
     Indication: MULTIPLE SCLEROSIS
     Dosage: UNK
     Route: 058
  3. CITALOPRAM [Concomitant]
     Dosage: 20 MG, QD

REACTIONS (8)
  - TEARFULNESS [None]
  - AMNESIA [None]
  - CONTUSION [None]
  - DEPRESSED MOOD [None]
  - INJECTION SITE PAIN [None]
  - MOBILITY DECREASED [None]
  - MULTIPLE SCLEROSIS [None]
  - MALAISE [None]
